FAERS Safety Report 6299675-4 (Version None)
Quarter: 2009Q3

REPORT INFORMATION
  Report Type: 
  Country: None (occurrence: None)
  Receive Date: 20090805
  Receipt Date: 20090805
  Transmission Date: 20100115
  Serious: Yes (Hospitalization)
  Sender: FDA-Public Use
  Company Number: None

PATIENT
  Age: 67 Year
  Sex: Female
  Weight: 83.2 kg

DRUGS (5)
  1. ITRACONAZOLE [Suspect]
     Indication: BREAST CANCER
     Dosage: 100 MG BID ORAL
     Route: 048
     Dates: start: 20090710, end: 20090723
  2. SYNTHROID [Concomitant]
  3. CALCIUM. [Concomitant]
  4. VITAMIN D [Concomitant]
  5. DARVOCET [Concomitant]

REACTIONS (4)
  - BLOOD ALKALINE PHOSPHATASE INCREASED [None]
  - HEPATIC ENZYME INCREASED [None]
  - PAIN [None]
  - PYREXIA [None]
